FAERS Safety Report 23322521 (Version 1)
Quarter: 2023Q4

REPORT INFORMATION
  Report Type: Spontaneous
  Country: US (occurrence: None)
  Receive Date: 20231220
  Receipt Date: 20231220
  Transmission Date: 20240109
  Serious: Yes (Disabling)
  Sender: FDA-Public Use
  Company Number: None

PATIENT
  Age: 35 Year
  Sex: Male
  Weight: 108 kg

DRUGS (2)
  1. CIPROFLOXACIN [Suspect]
     Active Substance: CIPROFLOXACIN
     Indication: Pyelonephritis
     Dosage: OTHER QUANTITY : 14 TABLET(S);?FREQUENCY : TWICE A DAY;?
     Route: 048
     Dates: start: 20231004, end: 20231009
  2. SUMATRIPTAN [Concomitant]
     Active Substance: SUMATRIPTAN

REACTIONS (6)
  - Arthralgia [None]
  - Tendonitis [None]
  - Gait disturbance [None]
  - Myalgia [None]
  - Panic attack [None]
  - Depression [None]

NARRATIVE: CASE EVENT DATE: 20231005
